FAERS Safety Report 10174940 (Version 2)
Quarter: 2014Q2

REPORT INFORMATION
  Report Type: Spontaneous
  Country: US (occurrence: US)
  Receive Date: 20140515
  Receipt Date: 20140602
  Transmission Date: 20141212
  Serious: Yes (Hospitalization, Other)
  Sender: FDA-Public Use
  Company Number: US-RB-067300-14

PATIENT
  Age: 36 Year
  Sex: Male

DRUGS (7)
  1. SUBOXONE TABLET [Suspect]
     Indication: DRUG DEPENDENCE
     Route: 060
     Dates: start: 2010, end: 2012
  2. SUBOXONE TABLET [Suspect]
     Dosage: THREE TIMES DAILY (24 MG), CUTTING AND TAPER; EXACT DOSING UNKNOWN
     Route: 060
     Dates: start: 201405
  3. VARIOUS OPIOIDS [Suspect]
     Indication: DRUG DEPENDENCE
     Dosage: DOSING DETAILS UNKNOWN
     Route: 048
     Dates: start: 2010
  4. VIVITROL [Suspect]
     Indication: DRUG DEPENDENCE
     Dosage: DOSING DETAILS UNKNOWN
     Route: 065
     Dates: start: 201104, end: 201104
  5. SUBOXONE FILM [Suspect]
     Route: 060
     Dates: start: 2012, end: 2013
  6. SUBOXONE FILM [Suspect]
     Indication: DRUG DEPENDENCE
     Route: 060
     Dates: start: 2013, end: 2014
  7. NICOTINE [Concomitant]
     Indication: PRODUCT USED FOR UNKNOWN INDICATION
     Dosage: ONE PACK OF CIGARETTE DAILY
     Route: 055

REACTIONS (14)
  - Drug withdrawal syndrome [Not Recovered/Not Resolved]
  - Disturbance in attention [Not Recovered/Not Resolved]
  - Abdominal pain [Not Recovered/Not Resolved]
  - Diarrhoea [Not Recovered/Not Resolved]
  - Insomnia [Not Recovered/Not Resolved]
  - Formication [Not Recovered/Not Resolved]
  - Piloerection [Not Recovered/Not Resolved]
  - Yawning [Not Recovered/Not Resolved]
  - Chills [Not Recovered/Not Resolved]
  - Anxiety [Recovered/Resolved]
  - Drug dependence [Not Recovered/Not Resolved]
  - Intestinal obstruction [Recovered/Resolved]
  - Wrong technique in drug usage process [Not Recovered/Not Resolved]
  - Intentional underdose [Not Recovered/Not Resolved]
